FAERS Safety Report 23590221 (Version 1)
Quarter: 2024Q1

REPORT INFORMATION
  Report Type: Spontaneous
  Country: US (occurrence: US)
  Receive Date: 20240304
  Receipt Date: 20240304
  Transmission Date: 20240410
  Serious: No
  Sender: FDA-Public Use
  Company Number: US-BAUSCHBL-2024BNL002423

PATIENT
  Age: 85 Year
  Sex: Female

DRUGS (1)
  1. XIIDRA [Suspect]
     Active Substance: LIFITEGRAST
     Indication: Dry eye
     Dosage: APPLY A DROP IN EACH EYE TWICE A DAY.
     Route: 047
     Dates: start: 20240219

REACTIONS (7)
  - Vision blurred [Unknown]
  - Product closure removal difficult [Unknown]
  - Product after taste [Unknown]
  - Multiple use of single-use product [Unknown]
  - Product dose omission in error [Unknown]
  - Product use complaint [Unknown]
  - Product container issue [Unknown]
